FAERS Safety Report 4565841-9 (Version None)
Quarter: 2005Q1

REPORT INFORMATION
  Report Type: 
  Country: None (occurrence: None)
  Receive Date: 20050128
  Receipt Date: 20050112
  Transmission Date: 20050727
  Serious: Yes (Hospitalization)
  Sender: FDA-Public Use
  Company Number: DSA_60464_2005

PATIENT
  Age: 43 Year
  Sex: Female

DRUGS (4)
  1. MYSOLINE [Suspect]
     Dosage: 250 MG QDAY PO
     Route: 048
     Dates: start: 20040315, end: 20040819
  2. SEGLOR LYOC [Suspect]
     Dosage: 5 MG BID PO
     Route: 048
     Dates: start: 20040315, end: 20040319
  3. DEROXAT [Suspect]
     Dosage: 20 MG QDAY PO
     Route: 048
     Dates: start: 20040315, end: 20040819
  4. URBANYL [Suspect]
     Dosage: TAB PO
     Route: 048
     Dates: start: 20040315, end: 20040819

REACTIONS (7)
  - ABDOMINAL PAIN [None]
  - COLITIS [None]
  - DIARRHOEA [None]
  - DRUG INEFFECTIVE [None]
  - FAECAL OCCULT BLOOD POSITIVE [None]
  - PROTHROMBIN TIME SHORTENED [None]
  - WEIGHT DECREASED [None]
